FAERS Safety Report 9903992 (Version 1)
Quarter: 2014Q1

REPORT INFORMATION
  Report Type: Spontaneous
  Country: US (occurrence: US)
  Receive Date: 20140218
  Receipt Date: 20140218
  Transmission Date: 20141002
  Serious: No
  Sender: FDA-Public Use
  Company Number: US-BIOGENIDEC-2014BI012141

PATIENT
  Age: 54 Year
  Sex: Female
  Weight: 38 kg

DRUGS (1)
  1. TECFIDERA [Suspect]
     Indication: MULTIPLE SCLEROSIS
     Route: 048
     Dates: start: 20140124, end: 20140129

REACTIONS (5)
  - Dermatitis bullous [Recovered/Resolved]
  - Palpitations [Unknown]
  - Balance disorder [Unknown]
  - Pruritus [Unknown]
  - Vomiting [Unknown]
